FAERS Safety Report 5904200-0 (Version None)
Quarter: 2008Q3

REPORT INFORMATION
  Report Type: 
  Country: None (occurrence: None)
  Receive Date: 20080930
  Receipt Date: 20080930
  Transmission Date: 20090109
  Serious: Yes (Other)
  Sender: FDA-Public Use
  Company Number: None

PATIENT
  Sex: Female
  Weight: 47.6277 kg

DRUGS (1)
  1. FLOVENT HFA [Suspect]
     Indication: ASTHMA
     Dosage: 1 SPRAY EACH NOSTRIL TWICE A DAY
     Route: 045
     Dates: start: 20040301, end: 20080910

REACTIONS (1)
  - CATARACT [None]
